FAERS Safety Report 7414959-1 (Version None)
Quarter: 2011Q2

REPORT INFORMATION
  Report Type: 
  Country: None (occurrence: None)
  Receive Date: 20110414
  Receipt Date: 20110411
  Transmission Date: 20111010
  Serious: Yes (Hospitalization, Other)
  Sender: FDA-Public Use
  Company Number: US-PFIZER INC-2011012905

PATIENT
  Sex: Female

DRUGS (6)
  1. FLEXERIL [Concomitant]
     Indication: PAIN
     Dosage: UNK
     Dates: start: 20080101, end: 20100101
  2. ACETAMINOPHEN [Concomitant]
     Indication: PAIN
     Dosage: UNK
  3. MOBIC [Concomitant]
     Indication: PAIN
     Dosage: UNK
     Dates: start: 20080101, end: 20100101
  4. LORTAB [Concomitant]
     Indication: PAIN
     Dosage: UNK
     Dates: start: 20080101, end: 20100101
  5. CHANTIX [Suspect]
     Indication: SMOKING CESSATION THERAPY
     Dosage: STARTER PACK AND CONTINUING PACK
     Dates: start: 20090421, end: 20090720
  6. FLEXERIL [Concomitant]
     Indication: MUSCLE SPASMS

REACTIONS (8)
  - MOOD SWINGS [None]
  - SUICIDE ATTEMPT [None]
  - NIGHTMARE [None]
  - ANXIETY [None]
  - INTENTIONAL OVERDOSE [None]
  - DEPRESSION [None]
  - AGGRESSION [None]
  - ANGER [None]
